FAERS Safety Report 25621948 (Version 2)
Quarter: 2025Q3

REPORT INFORMATION
  Report Type: Report from Study
  Country: US (occurrence: US)
  Receive Date: 20250730
  Receipt Date: 20250917
  Transmission Date: 20251021
  Serious: Yes (Life-Threatening, Other)
  Sender: CSL BEHRING
  Company Number: US-BEH-2025214030

PATIENT
  Age: 78 Year
  Sex: Female
  Weight: 49.887 kg

DRUGS (1)
  1. ZEMAIRA [Suspect]
     Active Substance: .ALPHA.1-PROTEINASE INHIBITOR HUMAN
     Indication: Alpha-1 antitrypsin deficiency
     Dosage: UNK UNK, QW
     Route: 042

REACTIONS (4)
  - Head injury [Unknown]
  - Fall [Unknown]
  - Foot fracture [Unknown]
  - Fall [Unknown]
